FAERS Safety Report 11145142 (Version 3)
Quarter: 2015Q3

REPORT INFORMATION
  Report Type: Spontaneous
  Country: JP (occurrence: JP)
  Receive Date: 20150526
  Receipt Date: 20150712
  Transmission Date: 20151125
  Serious: Yes (Death)
  Sender: FDA-Public Use
  Company Number: JP-JNJFOC-20150514923

PATIENT
  Age: 70 Year
  Sex: Female

DRUGS (7)
  1. XEPLION [Suspect]
     Active Substance: PALIPERIDONE PALMITATE
     Indication: SCHIZOPHRENIA
     Route: 030
     Dates: start: 20150306, end: 20150306
  2. LIMAS [Concomitant]
     Active Substance: LITHIUM CARBONATE
     Indication: BIPOLAR I DISORDER
     Route: 048
  3. XEPLION [Suspect]
     Active Substance: PALIPERIDONE PALMITATE
     Indication: SCHIZOPHRENIA
     Route: 030
     Dates: start: 20150403, end: 20150403
  4. BENZALIN [Concomitant]
     Active Substance: NITRAZEPAM
     Indication: SLEEP DISORDER
     Route: 048
  5. SELENICA-R [Concomitant]
     Active Substance: SELENIUM
     Indication: BIPOLAR I DISORDER
     Route: 048
  6. XEPLION [Suspect]
     Active Substance: PALIPERIDONE PALMITATE
     Indication: SCHIZOPHRENIA
     Route: 030
  7. ROZEREM [Concomitant]
     Active Substance: RAMELTEON
     Indication: SLEEP DISORDER
     Route: 048

REACTIONS (2)
  - Extrapyramidal disorder [Not Recovered/Not Resolved]
  - Asphyxia [Fatal]

NARRATIVE: CASE EVENT DATE: 20150424
